FAERS Safety Report 6207154-5 (Version None)
Quarter: 2009Q2

REPORT INFORMATION
  Report Type: 
  Country: None (occurrence: None)
  Receive Date: 20090528
  Receipt Date: 20090520
  Transmission Date: 20091009
  Serious: Yes (Other)
  Sender: FDA-Public Use
  Company Number: NL-B.I. PHARMACEUTICALS,INC./RIDGEFIELD-2009-NL-00323NL

PATIENT
  Sex: Male

DRUGS (6)
  1. MICARDIS HCT [Suspect]
  2. METOPROLOL SUCCINATE [Concomitant]
     Dosage: 100MG
     Route: 048
  3. SERETIDE [Concomitant]
     Dosage: 50/500 2DD
     Route: 055
  4. ALLOPURINOL [Concomitant]
     Dosage: 300NR
     Route: 048
  5. OXAZEPAM [Concomitant]
     Dosage: 10NR
     Route: 048
  6. ACTONEL [Concomitant]
     Dosage: 1ANZ
     Route: 048

REACTIONS (2)
  - DYSPHAGIA [None]
  - LIP AND/OR ORAL CAVITY CANCER [None]
